FAERS Safety Report 9054665 (Version 2)
Quarter: 2013Q2

REPORT INFORMATION
  Report Type: Spontaneous
  Country: DE (occurrence: DE)
  Receive Date: 20130208
  Receipt Date: 20130426
  Transmission Date: 20140414
  Serious: Yes (Other)
  Sender: FDA-Public Use
  Company Number: DE-JNJFOC-20130112798

PATIENT
  Age: 33 Year
  Sex: Male
  Weight: 90 kg

DRUGS (4)
  1. XEPLION [Suspect]
     Indication: SCHIZOAFFECTIVE DISORDER
     Route: 030
     Dates: start: 20120709
  2. XEPLION [Suspect]
     Indication: SCHIZOAFFECTIVE DISORDER
     Route: 030
  3. XEPLION [Suspect]
     Indication: SCHIZOAFFECTIVE DISORDER
     Route: 030
     Dates: start: 201208, end: 20121011
  4. JANUMET [Concomitant]
     Dosage: 50/100 MG 1-0-1
     Route: 048

REACTIONS (3)
  - Confusional state [Recovering/Resolving]
  - Depression [Recovering/Resolving]
  - Psychotic disorder [Unknown]
